FAERS Safety Report 14933808 (Version 1)
Quarter: 2018Q2

REPORT INFORMATION
  Report Type: Spontaneous
  Country: US (occurrence: US)
  Receive Date: 20180524
  Receipt Date: 20180524
  Transmission Date: 20180711
  Serious: No
  Sender: FDA-Public Use
  Company Number: US-TARO-2017TAR01080

PATIENT
  Sex: Female

DRUGS (1)
  1. FEVERALL INFANTS [Suspect]
     Active Substance: ACETAMINOPHEN
     Dosage: 160 MG, UNK
     Dates: start: 20171215

REACTIONS (3)
  - Feeling hot [Not Recovered/Not Resolved]
  - Rash erythematous [Not Recovered/Not Resolved]
  - Overdose [Not Recovered/Not Resolved]

NARRATIVE: CASE EVENT DATE: 20171215
